FAERS Safety Report 7487147-0 (Version None)
Quarter: 2011Q2

REPORT INFORMATION
  Report Type: 
  Country: None (occurrence: None)
  Receive Date: 20110510
  Receipt Date: 20110425
  Transmission Date: 20111010
  Serious: Yes (Other)
  Sender: FDA-Public Use
  Company Number: AUR-APU-2011-01125

PATIENT
  Age: 39 Year
  Sex: Female

DRUGS (1)
  1. CEFUROXIME [Suspect]
     Indication: SINUSITIS
     Dosage: 1 TABLET, DAILY, UNK
     Dates: start: 20110323, end: 20110324

REACTIONS (4)
  - THROAT IRRITATION [None]
  - PRODUCT SOLUBILITY ABNORMAL [None]
  - CHOKING [None]
  - SENSATION OF FOREIGN BODY [None]
